FAERS Safety Report 14028069 (Version 1)
Quarter: 2017Q3

REPORT INFORMATION
  Report Type: Spontaneous
  Country: US (occurrence: US)
  Receive Date: 20170929
  Receipt Date: 20170929
  Transmission Date: 20171128
  Serious: Yes (Hospitalization, Disabling, Other)
  Sender: FDA-Public Use
  Company Number: None

PATIENT
  Age: 44 Year
  Sex: Female
  Weight: 58.05 kg

DRUGS (8)
  1. MESTINON [Concomitant]
     Active Substance: PYRIDOSTIGMINE BROMIDE
  2. HUMIRA [Suspect]
     Active Substance: ADALIMUMAB
     Indication: UVEITIS
     Dosage: ?          QUANTITY:1 INJECTION(S);OTHER FREQUENCY:BIWEEKLY;OTHER ROUTE:SUB Q INJECTION?
     Dates: start: 20160801, end: 20170914
  3. ALREX EYE DROPS [Concomitant]
  4. FOLIC ACID. [Concomitant]
     Active Substance: FOLIC ACID
  5. SYNTHROID [Concomitant]
     Active Substance: LEVOTHYROXINE SODIUM
  6. ILLEVRO EYE DROPS [Concomitant]
  7. IBUPROFEN. [Concomitant]
     Active Substance: IBUPROFEN
  8. SULFASALAZINE. [Concomitant]
     Active Substance: SULFASALAZINE

REACTIONS (8)
  - Pertussis [None]
  - Myasthenia gravis [None]
  - Infection [None]
  - Hypoaesthesia [None]
  - Epiglottic mass [None]
  - Cellulitis orbital [None]
  - Oral candidiasis [None]
  - Thrombosis [None]

NARRATIVE: CASE EVENT DATE: 20161010
